FAERS Safety Report 7380025-7 (Version None)
Quarter: 2011Q1

REPORT INFORMATION
  Report Type: 
  Country: None (occurrence: None)
  Receive Date: 20110329
  Receipt Date: 20101210
  Transmission Date: 20110831
  Serious: Yes (Other)
  Sender: FDA-Public Use
  Company Number: CH-AMGEN-CHESP2010004890

PATIENT
  Sex: Female
  Weight: 65 kg

DRUGS (5)
  1. VENOFER [Concomitant]
     Dosage: 100 MG, 2 TIMES/WK
     Route: 042
     Dates: start: 20091201
  2. INDERAL                            /00030001/ [Concomitant]
     Dosage: 10 MG, BID
     Route: 048
     Dates: start: 20100501
  3. AGOPTON [Concomitant]
     Dosage: 30 MG, TID
     Route: 048
     Dates: start: 20100401
  4. VITAMIN D [Concomitant]
     Dosage: UNK UNK, QD
     Route: 048
     Dates: start: 20100501
  5. ARANESP [Suspect]
     Indication: RENAL FAILURE CHRONIC
     Dosage: 150 MG, QWK
     Route: 058
     Dates: start: 20071022

REACTIONS (2)
  - TRANSPLANT FAILURE [None]
  - DRUG INEFFECTIVE [None]
